FAERS Safety Report 9551418 (Version 1)
Quarter: 2013Q3

REPORT INFORMATION
  Report Type: Spontaneous
  Country: US (occurrence: None)
  Receive Date: 20130724
  Receipt Date: 20130724
  Transmission Date: 20140515
  Serious: Yes (Hospitalization)
  Sender: FDA-Public Use
  Company Number: PHEH2013US008372

PATIENT
  Age: 30 Year
  Sex: Female

DRUGS (3)
  1. AFINITOR [Suspect]
     Indication: TUBEROUS SCLEROSIS
     Route: 048
     Dates: start: 201208
  2. FLONASE (FLUTICASONE PROPIONATE) [Concomitant]
  3. ALBUTEROL (SALBUTAMOL) [Concomitant]

REACTIONS (3)
  - Pneumonia [None]
  - Bronchitis [None]
  - Fatigue [None]
